FAERS Safety Report 13769790 (Version 1)
Quarter: 2017Q3

REPORT INFORMATION
  Report Type: Spontaneous
  Country: FI (occurrence: FI)
  Receive Date: 20170719
  Receipt Date: 20170719
  Transmission Date: 20171127
  Serious: Yes (Other)
  Sender: FDA-Public Use
  Company Number: PHHY2017FI104348

PATIENT
  Age: 66 Year
  Sex: Female

DRUGS (1)
  1. TOBI PODHALER [Suspect]
     Active Substance: TOBRAMYCIN
     Indication: PSEUDOMONAS INFECTION
     Dosage: UNK
     Route: 065
     Dates: start: 20161025, end: 20161115

REACTIONS (5)
  - Asthma [Recovering/Resolving]
  - Wheezing [Recovered/Resolved]
  - Bronchial obstruction [Recovered/Resolved]
  - Bronchospasm [Recovered/Resolved]
  - Peak expiratory flow rate decreased [Recovered/Resolved]

NARRATIVE: CASE EVENT DATE: 2016
